FAERS Safety Report 23587294 (Version 1)
Quarter: 2024Q1

REPORT INFORMATION
  Report Type: Spontaneous
  Country: JP (occurrence: JP)
  Receive Date: 20240301
  Receipt Date: 20240301
  Transmission Date: 20240410
  Serious: Yes (Other)
  Sender: FDA-Public Use
  Company Number: JP-ELI_LILLY_AND_COMPANY-JP202402017314

PATIENT
  Age: 83 Year
  Sex: Female

DRUGS (1)
  1. DULOXETINE HYDROCHLORIDE [Suspect]
     Active Substance: DULOXETINE HYDROCHLORIDE
     Indication: Spinal stenosis
     Dosage: UNK
     Route: 048
     Dates: start: 2011

REACTIONS (4)
  - Cerebral artery stenosis [Unknown]
  - Arrhythmia [Unknown]
  - Chronic cheek biting [Unknown]
  - Abnormal dreams [Unknown]
